FAERS Safety Report 12132225 (Version 1)
Quarter: 2016Q1

REPORT INFORMATION
  Report Type: Spontaneous
  Country: US (occurrence: None)
  Receive Date: 20160229
  Receipt Date: 20160229
  Transmission Date: 20160526
  Serious: Yes (Other)
  Sender: FDA-Public Use
  Company Number: None

PATIENT
  Age: 17 Year
  Sex: Female
  Weight: 86.18 kg

DRUGS (6)
  1. ABILIFY [Concomitant]
     Active Substance: ARIPIPRAZOLE
  2. LAMICTAL [Concomitant]
     Active Substance: LAMOTRIGINE
  3. PROZAC [Concomitant]
     Active Substance: FLUOXETINE HYDROCHLORIDE
  4. TRAZODONE [Concomitant]
     Active Substance: TRAZODONE HYDROCHLORIDE
  5. NAPROXEN. [Suspect]
     Active Substance: NAPROXEN
  6. NEXPLANON [Suspect]
     Active Substance: ETONOGESTREL
     Indication: CONTRACEPTION
     Dosage: 658MG IMPLANT GIVEN INTO/UNDER THE SKIN
     Route: 062
     Dates: start: 20150808, end: 20160223

REACTIONS (4)
  - Feeling abnormal [None]
  - Depression [None]
  - Disturbance in attention [None]
  - Anxiety [None]

NARRATIVE: CASE EVENT DATE: 20160108
